FAERS Safety Report 7588635-9 (Version None)
Quarter: 2011Q3

REPORT INFORMATION
  Report Type: 
  Country: None (occurrence: None)
  Receive Date: 20110705
  Receipt Date: 20110613
  Transmission Date: 20111222
  Serious: Yes (Hospitalization, Other)
  Sender: FDA-Public Use
  Company Number: US-BAYER-2011-005981

PATIENT
  Age: 31 Year
  Sex: Female
  Weight: 52.154 kg

DRUGS (12)
  1. PERCOCET [Concomitant]
  2. MOTRIN [Concomitant]
  3. PRILOSEC [Concomitant]
  4. OXYCODON [Concomitant]
     Dosage: 5MG-325MG
     Route: 048
     Dates: start: 20081221
  5. COLACE [Concomitant]
  6. CIPROFLOXACIN HCL [Concomitant]
  7. IBUPROFEN [Concomitant]
     Dosage: 600 MG, UNK
     Route: 048
     Dates: start: 20081221
  8. YAZ [Suspect]
     Dosage: UNK
     Dates: start: 20060501, end: 20100101
  9. PEPCID [Concomitant]
  10. YAZ [Suspect]
     Indication: PRODUCT USED FOR UNKNOWN INDICATION
     Dosage: 1 DF, QD
     Route: 048
     Dates: start: 20080227
  11. FLAGYL [Concomitant]
  12. MORPHINE [Concomitant]

REACTIONS (4)
  - CHOLECYSTITIS CHRONIC [None]
  - CHOLECYSTITIS ACUTE [None]
  - PAIN [None]
  - CHOLECYSTECTOMY [None]
